FAERS Safety Report 17163554 (Version 1)
Quarter: 2019Q4

REPORT INFORMATION
  Report Type: Spontaneous
  Country: US (occurrence: US)
  Receive Date: 20191125
  Receipt Date: 20191125
  Transmission Date: 20200122
  Serious: No
  Sender: FDA-Public Use
  Company Number: None

PATIENT
  Age: 93 Year
  Sex: Female
  Weight: 48.99 kg

DRUGS (9)
  1. PREVNAR 13 [Suspect]
     Active Substance: PNEUMOCOCCAL 13-VALENT CONJUGATE VACCINE
  2. DORZOLAMIDE [Suspect]
     Active Substance: DORZOLAMIDE
     Route: 047
  3. LEVOTHYROXINE. [Concomitant]
     Active Substance: LEVOTHYROXINE
  4. COQ10 [Concomitant]
     Active Substance: UBIDECARENONE
  5. VITAMIN B12 [Concomitant]
     Active Substance: CYANOCOBALAMIN
  6. VIT B [Concomitant]
     Active Substance: VITAMIN B
  7. GLUCOSANN [Concomitant]
  8. COMBIGAN [Suspect]
     Active Substance: BRIMONIDINE TARTRATE\TIMOLOL MALEATE
  9. ZINC. [Concomitant]
     Active Substance: ZINC

REACTIONS (6)
  - Pain [None]
  - Joint stiffness [None]
  - Musculoskeletal stiffness [None]
  - Pruritus [None]
  - Skin disorder [None]
  - Therapy cessation [None]

NARRATIVE: CASE EVENT DATE: 20190901
